FAERS Safety Report 6810226-5 (Version None)
Quarter: 2010Q2

REPORT INFORMATION
  Report Type: 
  Country: None (occurrence: None)
  Receive Date: 20100630
  Receipt Date: 20100622
  Transmission Date: 20101027
  Serious: Yes (Other)
  Sender: FDA-Public Use
  Company Number: US-PFIZER INC-2010078828

PATIENT
  Sex: Female
  Weight: 76.644 kg

DRUGS (9)
  1. XALATAN [Suspect]
     Indication: INTRAOCULAR PRESSURE INCREASED
     Dosage: 2 GTT, 1X/DAY
     Route: 047
     Dates: start: 20100101
  2. SYNTHROID [Concomitant]
  3. ZOCOR [Concomitant]
  4. INSULIN [Concomitant]
     Indication: DIABETES MELLITUS
     Dosage: UNK
  5. COSOPT [Concomitant]
     Route: 047
  6. BROMFENAC [Concomitant]
     Route: 047
  7. CORTISONE [Concomitant]
  8. BRIMONIDINE [Concomitant]
     Route: 047
  9. AVASTIN [Concomitant]

REACTIONS (4)
  - EYE IRRITATION [None]
  - EYE SWELLING [None]
  - EYELID MARGIN CRUSTING [None]
  - LASER THERAPY [None]
